FAERS Safety Report 4712793-4 (Version None)
Quarter: 2005Q3

REPORT INFORMATION
  Report Type: 
  Country: None (occurrence: None)
  Receive Date: 20050711
  Receipt Date: 20050711
  Transmission Date: 20060218
  Serious: Yes (Hospitalization)
  Sender: FDA-Public Use
  Company Number: None

PATIENT
  Age: 61 Year
  Sex: Female

DRUGS (9)
  1. GEMZAR [Suspect]
  2. IRINOTECAN [Suspect]
  3. PAXIL [Concomitant]
  4. IMODIUM [Concomitant]
  5. MEGACE [Concomitant]
  6. KEFLEX [Concomitant]
  7. ZYPREXA [Concomitant]
  8. DURAGESIC-100 [Concomitant]
  9. OXYCODONE HCL [Concomitant]

REACTIONS (10)
  - ANAEMIA [None]
  - COLITIS [None]
  - CONFUSIONAL STATE [None]
  - DIARRHOEA [None]
  - HYPERPHAGIA [None]
  - LOWER GASTROINTESTINAL HAEMORRHAGE [None]
  - NAUSEA [None]
  - NEUTROPENIA [None]
  - PYREXIA [None]
  - VOMITING [None]
